FAERS Safety Report 7266962-2 (Version None)
Quarter: 2011Q1

REPORT INFORMATION
  Report Type: 
  Country: None (occurrence: None)
  Receive Date: 20110201
  Receipt Date: 20110125
  Transmission Date: 20110831
  Serious: Yes (Death)
  Sender: FDA-Public Use
  Company Number: IT-BRISTOL-MYERS SQUIBB COMPANY-15510613

PATIENT
  Age: 63 Year
  Sex: Male
  Weight: 67 kg

DRUGS (5)
  1. TACHIDOL [Concomitant]
  2. HUMULIN R [Concomitant]
  3. CISPLATIN [Suspect]
     Indication: NON-SMALL CELL LUNG CANCER
     Route: 042
     Dates: start: 20101221
  4. ALIMTA [Suspect]
     Indication: NON-SMALL CELL LUNG CANCER
     Dosage: VIAL
     Route: 042
     Dates: start: 20101221
  5. RABEPRAZOLE SODIUM [Concomitant]

REACTIONS (1)
  - DEATH [None]
